FAERS Safety Report 8210715-5 (Version None)
Quarter: 2012Q1

REPORT INFORMATION
  Report Type: 
  Country: None (occurrence: None)
  Receive Date: 20120315
  Receipt Date: 20111213
  Transmission Date: 20120608
  Serious: Yes (Hospitalization, Other)
  Sender: FDA-Public Use
  Company Number: US-BIOGENIDEC-2011BI040825

PATIENT
  Sex: Male

DRUGS (1)
  1. AVONEX [Suspect]
     Indication: MULTIPLE SCLEROSIS
     Route: 030
     Dates: start: 19951224

REACTIONS (4)
  - MULTIPLE MYELOMA [None]
  - HYPOTENSION [None]
  - BLOOD COUNT ABNORMAL [None]
  - MULTIPLE SCLEROSIS RELAPSE [None]
